FAERS Safety Report 12327410 (Version 3)
Quarter: 2016Q3

REPORT INFORMATION
  Report Type: Spontaneous
  Country: GB (occurrence: GB)
  Receive Date: 20160503
  Receipt Date: 20160715
  Transmission Date: 20161109
  Serious: Yes (Other)
  Sender: FDA-Public Use
  Company Number: GB-TEVA-656016ACC

PATIENT
  Age: 60 Year
  Sex: Female

DRUGS (6)
  1. SELENIUM [Concomitant]
     Active Substance: SELENIUM
  2. ZINC [Concomitant]
     Active Substance: ZINC\ZINC CHLORIDE
     Dosage: PESSARY
  3. LAMOTRIGINE. [Concomitant]
     Active Substance: LAMOTRIGINE
     Indication: EPILEPSY
     Dosage: PESSARY
  4. ANDREWS LIVER SALTS [Concomitant]
     Active Substance: ANHYDROUS CITRIC ACID\BICARBONATE ION\MAGNESIUM CATION
     Dosage: 1 SMALL LEVEL TEASPOON?AM
  5. TRIMETHOPRIM. [Suspect]
     Active Substance: TRIMETHOPRIM
     Indication: CYSTITIS
     Route: 048
     Dates: start: 20160229
  6. KEPPRA [Concomitant]
     Active Substance: LEVETIRACETAM

REACTIONS (2)
  - Fall [Recovering/Resolving]
  - Loss of consciousness [Recovering/Resolving]

NARRATIVE: CASE EVENT DATE: 20160229
